FAERS Safety Report 14325478 (Version 2)
Quarter: 2018Q4

REPORT INFORMATION
  Report Type: Report from Study
  Country: GB (occurrence: GB)
  Receive Date: 20171226
  Receipt Date: 20181113
  Transmission Date: 20190204
  Serious: Yes (Life-Threatening, Hospitalization, Disabling, Other)
  Sender: FDA-Public Use
  Company Number: GB-MYLANLABS-2017M1081840

PATIENT
  Age: 16 Year
  Sex: Female
  Weight: 64.8 kg

DRUGS (11)
  1. HUMIRA [Suspect]
     Active Substance: ADALIMUMAB
     Dosage: 80 MG, QW
     Route: 058
     Dates: start: 20170927, end: 20171018
  2. HUMIRA [Suspect]
     Active Substance: ADALIMUMAB
     Indication: CROHN^S DISEASE
     Dosage: UNK
     Route: 058
  3. HUMIRA [Suspect]
     Active Substance: ADALIMUMAB
     Dosage: 40 MG, QW
     Route: 058
     Dates: start: 20171025
  4. HUMIRA [Suspect]
     Active Substance: ADALIMUMAB
     Dosage: 40 MG, 2 WEEK
     Route: 058
     Dates: start: 20151011, end: 20170118
  5. AZATHIOPRINE. [Suspect]
     Active Substance: AZATHIOPRINE
     Indication: CROHN^S DISEASE
     Dosage: 1 DF, QD
     Route: 048
     Dates: start: 20160601, end: 2016
  6. AZATHIOPRINE. [Suspect]
     Active Substance: AZATHIOPRINE
     Dosage: 125 MG, QD
     Route: 048
     Dates: start: 20160601, end: 20170129
  7. HUMIRA [Suspect]
     Active Substance: ADALIMUMAB
     Dosage: 40 MG, BIWEEKLY
     Route: 058
     Dates: start: 20170221, end: 20170612
  8. AZATHIOPRINE. [Suspect]
     Active Substance: AZATHIOPRINE
     Dosage: 125 MG, QD
     Route: 048
     Dates: start: 20161206, end: 20170130
  9. HUMIRA [Suspect]
     Active Substance: ADALIMUMAB
     Dosage: 40 MG, BIWEEKLY
     Route: 058
     Dates: start: 20161206, end: 20170130
  10. HUMIRA [Suspect]
     Active Substance: ADALIMUMAB
     Dosage: 40 MG, QW
     Route: 058
     Dates: start: 20170613, end: 20170620
  11. HUMIRA [Suspect]
     Active Substance: ADALIMUMAB
     Dosage: 40 MG, QW
     Route: 058
     Dates: start: 20170808, end: 20170921

REACTIONS (7)
  - Cardiac arrest [Recovered/Resolved]
  - Pneumothorax [Recovered/Resolved]
  - Acute kidney injury [Recovered/Resolved]
  - Air embolism [Recovered/Resolved]
  - Procedural complication [Recovered/Resolved]
  - Brain injury [Not Recovered/Not Resolved]
  - Large intestinal stenosis [Recovered/Resolved]

NARRATIVE: CASE EVENT DATE: 20170130
